FAERS Safety Report 15956791 (Version 1)
Quarter: 2019Q1

REPORT INFORMATION
  Report Type: Spontaneous
  Country: CA (occurrence: CA)
  Receive Date: 20190213
  Receipt Date: 20190213
  Transmission Date: 20190417
  Serious: Yes (Life-Threatening, Other)
  Sender: FDA-Public Use
  Company Number: CA-INDIVIOR LIMITED-INDV-117689-2019

PATIENT
  Age: 41 Year
  Sex: Female
  Weight: 73.02 kg

DRUGS (1)
  1. SUBOXONE [Suspect]
     Active Substance: BUPRENORPHINE HYDROCHLORIDE\NALOXONE HYDROCHLORIDE
     Indication: DRUG DEPENDENCE
     Dosage: 8 MG (3 EVERY 1 DAY)
     Route: 048

REACTIONS (7)
  - Alopecia [Recovering/Resolving]
  - Intentional product use issue [Unknown]
  - Drug dependence [Recovering/Resolving]
  - Suicidal behaviour [Recovering/Resolving]
  - Homicidal ideation [Recovering/Resolving]
  - Aggression [Recovering/Resolving]
  - Anger [Recovering/Resolving]
